FAERS Safety Report 7444283-2 (Version None)
Quarter: 2011Q2

REPORT INFORMATION
  Report Type: 
  Country: None (occurrence: None)
  Receive Date: 20110429
  Receipt Date: 20110418
  Transmission Date: 20111010
  Serious: Yes (Hospitalization)
  Sender: FDA-Public Use
  Company Number: US-JNJFOC-20110403553

PATIENT
  Sex: Male
  Weight: 52.7 kg

DRUGS (10)
  1. OMEPRAZOLE [Concomitant]
  2. REMICADE [Suspect]
     Indication: INFLAMMATORY BOWEL DISEASE
     Route: 042
  3. HUMIRA [Concomitant]
  4. SINGULAIR [Concomitant]
  5. HUMIRA [Concomitant]
  6. PREDNISONE [Concomitant]
  7. PROBIOTICS [Concomitant]
  8. METHOTREXATE [Concomitant]
  9. ALLEGRA [Concomitant]
  10. FOLIC ACID [Concomitant]

REACTIONS (1)
  - PYREXIA [None]
